FAERS Safety Report 21509754 (Version 1)
Quarter: 2022Q4

REPORT INFORMATION
  Report Type: Spontaneous
  Country: JP (occurrence: JP)
  Receive Date: 20221026
  Receipt Date: 20221026
  Transmission Date: 20230112
  Serious: No
  Sender: FDA-Public Use
  Company Number: JP-JAZZ-2021-JP-022494

PATIENT
  Age: 29 Year
  Sex: Male
  Weight: 34.2 kg

DRUGS (4)
  1. DEFITELIO [Suspect]
     Active Substance: DEFIBROTIDE SODIUM
     Indication: Venoocclusive disease
     Dosage: 12.5 MG/KG/24 HOURS
     Route: 042
     Dates: start: 20210610, end: 20210612
  2. DEFITELIO [Suspect]
     Active Substance: DEFIBROTIDE SODIUM
     Indication: Venoocclusive liver disease
     Dosage: 20 MG/KG (20 MG/KG/24 HOURS)
     Route: 042
     Dates: start: 20210613, end: 20210623
  3. DEFITELIO [Suspect]
     Active Substance: DEFIBROTIDE SODIUM
     Dosage: 12.5 MG/KG/24 HOURS
     Route: 042
     Dates: start: 20210624, end: 20210625
  4. ACOALAN [Concomitant]
     Indication: Product used for unknown indication
     Dosage: UNK
     Dates: start: 20210526, end: 20210622

REACTIONS (2)
  - Epistaxis [Recovered/Resolved]
  - Off label use [Unknown]

NARRATIVE: CASE EVENT DATE: 20210621
